FAERS Safety Report 7954054-6 (Version None)
Quarter: 2011Q4

REPORT INFORMATION
  Report Type: 
  Country: None (occurrence: None)
  Receive Date: 20111202
  Receipt Date: 20111129
  Transmission Date: 20120403
  Serious: Yes (Hospitalization, Other)
  Sender: FDA-Public Use
  Company Number: US-AMGEN-USASP2011062984

PATIENT
  Sex: Female

DRUGS (2)
  1. ENBREL [Suspect]
     Indication: RHEUMATOID ARTHRITIS
     Dosage: 25 MG, 2 TIMES/WK
     Dates: start: 19970101
  2. ANTIHYPERTENSIVES [Concomitant]
     Indication: HYPERTENSION

REACTIONS (6)
  - BLOOD PRESSURE INCREASED [None]
  - KIDNEY INFECTION [None]
  - INCREASED TENDENCY TO BRUISE [None]
  - INJECTION SITE PAIN [None]
  - CYSTITIS [None]
  - INJECTION SITE HAEMATOMA [None]
